FAERS Safety Report 7542565-7 (Version None)
Quarter: 2011Q2

REPORT INFORMATION
  Report Type: 
  Country: None (occurrence: None)
  Receive Date: 20110613
  Receipt Date: 20110603
  Transmission Date: 20111010
  Serious: Yes (Hospitalization)
  Sender: FDA-Public Use
  Company Number: SE-ABBOTT-11P-150-0722656-01

PATIENT
  Sex: Female

DRUGS (9)
  1. DIMOR [Concomitant]
     Indication: CROHN'S DISEASE
     Dates: start: 20070112
  2. BETNOVAT MED CHINOFORM [Concomitant]
  3. PENTASA [Concomitant]
     Indication: CROHN'S DISEASE
     Dates: start: 20090818
  4. AZATHIOPRINE SODIUM [Concomitant]
     Indication: CROHN'S DISEASE
     Dates: start: 20081014
  5. HUMIRA [Suspect]
     Indication: CROHN'S DISEASE
     Dosage: BASELINE
     Route: 058
     Dates: start: 20080722, end: 20080722
  6. HUMIRA [Suspect]
     Route: 058
     Dates: end: 20090623
  7. PROPYLESS [Concomitant]
     Indication: RASH
     Dates: start: 20090407
  8. PROPYLESS [Concomitant]
  9. BETNOVAT MED CHINOFORM [Concomitant]
     Indication: RASH
     Dosage: TWICE A DAY DURING WEEK 1, DAILY DURING WEEK 2, EVERY OTHER DAY FROM WEEK 3
     Dates: start: 20090407

REACTIONS (2)
  - ABSCESS [None]
  - CROHN'S DISEASE [None]
